FAERS Safety Report 5863859-7 (Version None)
Quarter: 2008Q3

REPORT INFORMATION
  Report Type: 
  Country: None (occurrence: None)
  Receive Date: 20080827
  Receipt Date: 20080818
  Transmission Date: 20090109
  Serious: Yes (Other)
  Sender: FDA-Public Use
  Company Number: 1000000560

PATIENT
  Age: 5 Year
  Sex: Male

DRUGS (1)
  1. THEOPHYLLINE ELIXIR (THEOPHYLLINE) [Suspect]
     Dosage: ORAL
     Route: 048

REACTIONS (1)
  - STATUS EPILEPTICUS [None]
